FAERS Safety Report 10228148 (Version 1)
Quarter: 2014Q2

REPORT INFORMATION
  Report Type: Spontaneous
  Country: US (occurrence: US)
  Receive Date: 20140610
  Receipt Date: 20140610
  Transmission Date: 20141212
  Serious: No
  Sender: FDA-Public Use
  Company Number: US-PFIZER INC-2014155469

PATIENT
  Age: 57 Year
  Sex: Male
  Weight: 92.52 kg

DRUGS (15)
  1. SOMAVERT [Suspect]
     Indication: ACROMEGALY
     Dosage: 30 MG, 2X/DAY
     Dates: start: 201405
  2. SOMAVERT [Suspect]
     Dosage: 15 MG, DAILY
     Dates: start: 201405
  3. SOMAVERT [Suspect]
     Dosage: 15 MG, 2X/DAY
     Dates: start: 20140508
  4. SOMAVERT [Suspect]
     Dosage: 15 MG, DAILY
     Dates: start: 20140510
  5. SOMAVERT [Suspect]
     Dosage: 15 MG, 2X/DAY
     Dates: start: 20140513
  6. SOMAVERT [Suspect]
     Dosage: 15 MG, DAILY
     Dates: start: 20140515
  7. CORTEF [Concomitant]
     Indication: ADRENAL DISORDER
     Dosage: 10 MG, 2X/DAY
  8. ANDROGEL [Concomitant]
     Indication: TESTICULAR DISORDER
     Dosage: 2 MG, AS NEEDED
  9. DIAZEPAM [Concomitant]
     Indication: HYPOTONIA
     Dosage: 10 MG, 4X/DAY
  10. DIAZEPAM [Concomitant]
     Indication: ANXIETY
  11. OXYCONTIN [Concomitant]
     Indication: PAIN
     Dosage: 60 MG, 4X/DAY
  12. MORPHINE SULPHATE [Concomitant]
     Indication: PAIN
     Dosage: 30 MG, 4X/DAY
  13. AMLODIPINE BESYLATE [Concomitant]
     Indication: HYPERTENSION
     Dosage: UNK, DAILY
  14. ZOLPIDEM [Concomitant]
     Indication: SLEEP DISORDER
     Dosage: 10 MG, AS NEEDED
  15. ONDANSETRON [Concomitant]
     Indication: NAUSEA
     Dosage: 4 MG, AS NEEDED (IN THE MORNING)

REACTIONS (2)
  - Gastrointestinal pain [Recovered/Resolved]
  - Drug ineffective [Unknown]
